FAERS Safety Report 8116020 (Version 3)
Quarter: 2017Q2

REPORT INFORMATION
  Report Type: Report from Study
  Country: US (occurrence: US)
  Receive Date: 20110831
  Receipt Date: 20170616
  Transmission Date: 20170830
  Serious: Yes (Hospitalization, Other)
  Sender: FDA-Public Use
  Company Number: US-ASTRAZENECA-2011SE50676

PATIENT
  Age: 14574 Day
  Sex: Female

DRUGS (2)
  1. SEROQUEL XR [Suspect]
     Active Substance: QUETIAPINE FUMARATE
     Indication: SLEEP DISORDER
     Dosage: 300.0MG UNKNOWN
     Route: 048
  2. BRILINTA [Suspect]
     Active Substance: TICAGRELOR
     Indication: VASCULAR STENT THROMBOSIS
     Route: 048
     Dates: start: 201705

REACTIONS (6)
  - Off label use [Unknown]
  - Coronary artery disease [Unknown]
  - Increased tendency to bruise [Unknown]
  - Insomnia [Unknown]
  - Vascular stent thrombosis [Unknown]
  - Product use issue [Unknown]

NARRATIVE: CASE EVENT DATE: 20110811
